FAERS Safety Report 5587917-X (Version None)
Quarter: 2008Q1

REPORT INFORMATION
  Report Type: 
  Country: None (occurrence: None)
  Receive Date: 20080111
  Receipt Date: 20080107
  Transmission Date: 20080703
  Serious: Yes (Hospitalization, Other)
  Sender: FDA-Public Use
  Company Number: NL-BAYER-200716890GDS

PATIENT
  Age: 69 Year
  Sex: Female

DRUGS (6)
  1. NEXAVAR [Suspect]
     Indication: METASTATIC RENAL CELL CARCINOMA
     Route: 048
     Dates: start: 20071106
  2. NEXAVAR [Suspect]
     Dosage: TOTAL DAILY DOSE: 400 MG  UNIT DOSE: 200 MG
     Route: 048
     Dates: start: 20071123, end: 20071123
  3. NEXAVAR [Suspect]
     Dosage: TOTAL DAILY DOSE: 400 MG  UNIT DOSE: 200 MG
     Route: 048
     Dates: start: 20071126, end: 20071203
  4. NEXAVAR [Suspect]
     Dosage: TOTAL DAILY DOSE: 400 MG  UNIT DOSE: 200 MG
     Route: 048
     Dates: start: 20080107
  5. NEXAVAR [Suspect]
     Dosage: TOTAL DAILY DOSE: 600 MG  UNIT DOSE: 200 MG
     Route: 048
     Dates: start: 20071204, end: 20080106
  6. ANTIBIOTICS [Concomitant]
     Indication: URINARY TRACT INFECTION
     Route: 042

REACTIONS (13)
  - ABDOMINAL DISTENSION [None]
  - AGEUSIA [None]
  - ALOPECIA [None]
  - BLISTER [None]
  - BURNING SENSATION [None]
  - DIARRHOEA [None]
  - ERYTHEMA [None]
  - GLOSSODYNIA [None]
  - PARAESTHESIA [None]
  - PYREXIA [None]
  - RASH [None]
  - RASH GENERALISED [None]
  - URINARY TRACT INFECTION [None]
